FAERS Safety Report 12832124 (Version 2)
Quarter: 2016Q4

REPORT INFORMATION
  Report Type: Report from Study
  Country: US (occurrence: US)
  Receive Date: 20161010
  Receipt Date: 20161019
  Transmission Date: 20170207
  Serious: Yes (Death, Other)
  Sender: FDA-Public Use
  Company Number: PHEH2016US025965

PATIENT
  Age: 46 Year
  Sex: Male

DRUGS (6)
  1. PACLITAXEL. [Concomitant]
     Active Substance: PACLITAXEL
     Dosage: STARTED IN COMBINATION
     Route: 065
  2. BEVACIZUMAB [Concomitant]
     Active Substance: BEVACIZUMAB
     Indication: ANGIOSARCOMA METASTATIC
     Dosage: UNK
     Route: 065
  3. PACLITAXEL. [Concomitant]
     Active Substance: PACLITAXEL
     Indication: ANGIOSARCOMA METASTATIC
     Dosage: UNK
     Route: 065
  4. VOTRIENT [Suspect]
     Active Substance: PAZOPANIB HYDROCHLORIDE
     Indication: ANGIOSARCOMA METASTATIC
     Dosage: UNK
     Route: 065
  5. PACLITAXEL. [Concomitant]
     Active Substance: PACLITAXEL
     Dosage: UNK
     Route: 065
     Dates: end: 201301
  6. DEXAMETHASONE. [Concomitant]
     Active Substance: DEXAMETHASONE
     Indication: ANGIOSARCOMA METASTATIC
     Dosage: 20 MG, UNK
     Route: 065

REACTIONS (11)
  - Neoplasm progression [Unknown]
  - Malignant neoplasm progression [Unknown]
  - Bone marrow disorder [Unknown]
  - Hypertension [Unknown]
  - Blood fibrinogen increased [Unknown]
  - Contusion [Unknown]
  - Malaise [Unknown]
  - Death [Fatal]
  - Back pain [Unknown]
  - Platelet count decreased [Recovering/Resolving]
  - Skin neoplasm bleeding [Unknown]

NARRATIVE: CASE EVENT DATE: 20151202
